FAERS Safety Report 4887575-3 (Version None)
Quarter: 2006Q1

REPORT INFORMATION
  Report Type: 
  Country: None (occurrence: None)
  Receive Date: 20060119
  Receipt Date: 20060119
  Transmission Date: 20060701
  Serious: Yes (Hospitalization)
  Sender: FDA-Public Use
  Company Number: None

PATIENT
  Age: 61 Year
  Sex: Male
  Weight: 103.8737 kg

DRUGS (1)
  1. PACLITAXEL [Suspect]
     Dosage: 120 MG IV INFUSED OVER 60 MIN
     Route: 042

REACTIONS (9)
  - BURNING SENSATION [None]
  - CARDIO-RESPIRATORY ARREST [None]
  - CHEST DISCOMFORT [None]
  - DIZZINESS [None]
  - DYSPNOEA [None]
  - HYPERHIDROSIS [None]
  - INFUSION RELATED REACTION [None]
  - PALPITATIONS [None]
  - VISION BLURRED [None]
